FAERS Safety Report 13027959 (Version 3)
Quarter: 2017Q1

REPORT INFORMATION
  Report Type: Spontaneous
  Country: JP (occurrence: JP)
  Receive Date: 20161214
  Receipt Date: 20170127
  Transmission Date: 20170428
  Serious: Yes (Other)
  Sender: FDA-Public Use
  Company Number: JP-PFIZER INC-2016549883

PATIENT
  Age: 72 Year
  Sex: Male

DRUGS (6)
  1. FAMOTIDINE. [Suspect]
     Active Substance: FAMOTIDINE
     Indication: BRONCHOPULMONARY ASPERGILLOSIS
     Dosage: 20 MG, 2X/DAY
     Dates: end: 20161202
  2. ZYVOX [Suspect]
     Active Substance: LINEZOLID
     Indication: BRONCHOPULMONARY ASPERGILLOSIS
     Dosage: 600 MG, 2X/DAY
     Route: 041
     Dates: start: 20161122, end: 20161205
  3. DORIPENEM [Concomitant]
     Active Substance: DORIPENEM
     Indication: BRONCHOPULMONARY ASPERGILLOSIS
     Dosage: 250 MG, 3X/DAY
     Route: 041
     Dates: start: 20161111, end: 20161111
  4. CARBOCISTEINE [Suspect]
     Active Substance: CARBOCYSTEINE
     Indication: BRONCHOPULMONARY ASPERGILLOSIS
     Dosage: 500 MG, 3X/DAY
     Dates: end: 20161205
  5. DORIPENEM [Concomitant]
     Active Substance: DORIPENEM
     Dosage: 150 MG, 1X/DAY
     Route: 041
     Dates: start: 20161112, end: 20161118
  6. AZITHROMYCIN ANHYDROUS. [Concomitant]
     Active Substance: AZITHROMYCIN ANHYDROUS
     Indication: BRONCHOPULMONARY ASPERGILLOSIS
     Dosage: 500 MG, 1X/DAY
     Route: 041
     Dates: start: 20161111, end: 20161115

REACTIONS (1)
  - Injection site pain [Recovering/Resolving]

NARRATIVE: CASE EVENT DATE: 20161124
